FAERS Safety Report 9960683 (Version 1)
Quarter: 2014Q1

REPORT INFORMATION
  Report Type: Spontaneous
  Country: US (occurrence: None)
  Receive Date: 20140304
  Receipt Date: 20140304
  Transmission Date: 20141002
  Serious: No
  Sender: FDA-Public Use
  Company Number: None

PATIENT
  Age: 10 Year
  Sex: Male
  Weight: 37.01 kg

DRUGS (1)
  1. FOCALIN XR [Suspect]
     Dosage: 30 MG: 1 TAB Q AM PO
     Route: 048

REACTIONS (6)
  - Nausea [None]
  - Vomiting [None]
  - Headache [None]
  - Pruritus [None]
  - Abdominal pain [None]
  - Product substitution issue [None]
